FAERS Safety Report 5928891-3 (Version None)
Quarter: 2008Q3

REPORT INFORMATION
  Report Type: 
  Country: None (occurrence: None)
  Receive Date: 20080923
  Receipt Date: 20080320
  Transmission Date: 20090109
  Serious: Yes (Other)
  Sender: FDA-Public Use
  Company Number: 2008US004073

PATIENT
  Age: 66 Year
  Sex: Female
  Weight: 64.9 kg

DRUGS (10)
  1. ALOXI [Suspect]
     Indication: PROPHYLAXIS OF NAUSEA AND VOMITING
     Dosage: 0.25 MG, SINGLE, INTRAVENOUS
     Route: 042
     Dates: start: 20080312, end: 20080312
  2. ELOXATIN [Suspect]
     Indication: COLON CANCER
     Dosage: 130 MG, SINGLE, INTRAVENOUS
     Route: 042
     Dates: start: 20080312, end: 20080312
  3. DECADRON [Concomitant]
  4. 5-FU /000098801/ (FLUOROOURACIL) [Concomitant]
  5. LEUCOVORIN /00566701/ (FOLINIC ACID) [Concomitant]
  6. COREG [Concomitant]
  7. ZOCOR [Concomitant]
  8. PRINIVIL [Concomitant]
  9. LASIX [Concomitant]
  10. AVAPRO [Concomitant]

REACTIONS (4)
  - FLUSHING [None]
  - HYPERSENSITIVITY [None]
  - NAUSEA [None]
  - TONGUE OEDEMA [None]
